FAERS Safety Report 4705946-2 (Version None)
Quarter: 2005Q2

REPORT INFORMATION
  Report Type: 
  Country: None (occurrence: None)
  Receive Date: 20050628
  Receipt Date: 20040603
  Transmission Date: 20051028
  Serious: Yes (Hospitalization)
  Sender: FDA-Public Use
  Company Number: VISP-PR-0406C-0212

PATIENT
  Age: 79 Year
  Sex: Male
  Weight: 97 kg

DRUGS (13)
  1. VISIPAQUE [Suspect]
     Dosage: 450 ML, SINGLE DOSE, I.A.
     Route: 013
     Dates: start: 20030801, end: 20030801
  2. ZESTRIL [Concomitant]
  3. AVANDIA [Concomitant]
  4. THEO-DUR [Concomitant]
  5. FLUVASTATIN SODIUM (LESCOL) [Concomitant]
  6. ASPIRIN [Concomitant]
  7. LASIX [Concomitant]
  8. NICOTINIC ACID (NIASPAN) [Concomitant]
  9. TERAZOSIN HCL [Concomitant]
  10. LORAZEPAM [Concomitant]
  11. ANGIOMAX [Concomitant]
  12. CELEBREX [Concomitant]
  13. ACETYLCYSTEINE [Concomitant]

REACTIONS (2)
  - ATRIOVENTRICULAR BLOCK COMPLETE [None]
  - RENAL FAILURE [None]
